FAERS Safety Report 13713571 (Version 1)
Quarter: 2017Q3

REPORT INFORMATION
  Report Type: Other
  Country: CA (occurrence: CA)
  Receive Date: 20170704
  Receipt Date: 20170704
  Transmission Date: 20171127
  Serious: Yes (Other)
  Sender: FDA-Public Use
  Company Number: CA-APOTEX-2017AP013619

PATIENT
  Age: 59 Year
  Sex: Female
  Weight: 97 kg

DRUGS (8)
  1. APO-QUETIAPINE [Suspect]
     Active Substance: QUETIAPINE
     Indication: SCHIZOPHRENIA
     Dosage: 100 MG, QD
     Route: 048
  2. APO-RISPERIDONE [Suspect]
     Active Substance: RISPERIDONE
     Indication: SCHIZOPHRENIA
     Dosage: 1 MG, QD
     Route: 048
  3. APO-QUETIAPINE [Suspect]
     Active Substance: QUETIAPINE
     Indication: BIPOLAR DISORDER
     Dosage: 200 MG, TID
     Route: 048
  4. TYLENOL [Concomitant]
     Active Substance: ACETAMINOPHEN
     Indication: PRODUCT USED FOR UNKNOWN INDICATION
     Dosage: UNK
     Route: 065
  5. BENZTROPINE MESYLATE. [Concomitant]
     Active Substance: BENZTROPINE MESYLATE
     Indication: PRODUCT USED FOR UNKNOWN INDICATION
     Dosage: UNK
     Route: 065
  6. APO-RISPERIDONE [Suspect]
     Active Substance: RISPERIDONE
     Indication: BIPOLAR DISORDER
  7. IBUPROFEN. [Concomitant]
     Active Substance: IBUPROFEN
     Indication: PRODUCT USED FOR UNKNOWN INDICATION
     Dosage: UNK
     Route: 065
  8. SENNA                              /00142201/ [Concomitant]
     Active Substance: SENNA LEAF
     Indication: PRODUCT USED FOR UNKNOWN INDICATION
     Dosage: UNK
     Route: 065

REACTIONS (32)
  - Hallucinations, mixed [Unknown]
  - Dry mouth [Unknown]
  - Headache [Unknown]
  - Loss of consciousness [Unknown]
  - Breast swelling [Unknown]
  - Abdominal pain [Unknown]
  - Akinesia [Unknown]
  - Compulsive lip biting [Unknown]
  - Muscle strain [Unknown]
  - Visual acuity reduced [Unknown]
  - Somnambulism [Unknown]
  - Chest pain [Unknown]
  - Syncope [Unknown]
  - Paraesthesia [Unknown]
  - Constipation [Unknown]
  - Diarrhoea [Unknown]
  - Tinnitus [Unknown]
  - Tongue disorder [Unknown]
  - Overdose [Unknown]
  - Eye swelling [Unknown]
  - Pain in extremity [Unknown]
  - Musculoskeletal stiffness [Unknown]
  - Paralysis [Unknown]
  - Increased tendency to bruise [Unknown]
  - Ligament sprain [Unknown]
  - Peau d^orange [Unknown]
  - Hypoaesthesia [Unknown]
  - Bone loss [Unknown]
  - Anxiety [Unknown]
  - Arthralgia [Unknown]
  - Weight increased [Unknown]
  - Vomiting [Unknown]
